FAERS Safety Report 5583721-7 (Version None)
Quarter: 2008Q1

REPORT INFORMATION
  Report Type: 
  Country: None (occurrence: None)
  Receive Date: 20080102
  Receipt Date: 20071221
  Transmission Date: 20080703
  Serious: No
  Sender: FDA-Public Use
  Company Number: MEDI-0006126(1)

PATIENT
  Age: 4 Month
  Sex: Female
  Weight: 4.92 kg

DRUGS (2)
  1. SYNAGIS [Suspect]
     Indication: ANTIVIRAL PROPHYLAXIS
     Dosage: 21 MG/KG, INTRAMUSCULAR
     Route: 030
     Dates: start: 20071029, end: 20071029
  2. SYNAGIS [Suspect]
     Indication: ANTIVIRAL PROPHYLAXIS
     Dosage: 21 MG/KG, INTRAMUSCULAR
     Route: 030
     Dates: start: 20071101

REACTIONS (2)
  - ACCIDENTAL OVERDOSE [None]
  - INCORRECT DOSE ADMINISTERED [None]
